FAERS Safety Report 21258588 (Version 6)
Quarter: 2022Q4

REPORT INFORMATION
  Report Type: Spontaneous
  Country: US (occurrence: US)
  Receive Date: 20220826
  Receipt Date: 20221116
  Transmission Date: 20230113
  Serious: No
  Sender: FDA-Public Use
  Company Number: US-PFIZER INC-PV202200051001

PATIENT
  Age: 69 Year
  Sex: Female

DRUGS (1)
  1. IBRANCE [Suspect]
     Active Substance: PALBOCICLIB
     Dosage: 21 DAYS ON, 7 DAYS OFF

REACTIONS (4)
  - Fatigue [Recovered/Resolved]
  - Abdominal distension [Unknown]
  - Fall [Unknown]
  - Product dose omission issue [Unknown]
